FAERS Safety Report 17633134 (Version 3)
Quarter: 2020Q3

REPORT INFORMATION
  Report Type: Spontaneous
  Country: US (occurrence: US)
  Receive Date: 20200406
  Receipt Date: 20200716
  Transmission Date: 20201102
  Serious: Yes (Other)
  Sender: FDA-Public Use
  Company Number: US-SA-2020SA082552

PATIENT

DRUGS (2)
  1. ADMELOG [Suspect]
     Active Substance: INSULIN LISPRO
     Indication: DIABETES MELLITUS
     Dosage: UNK UNK, TID
     Route: 065
  2. ADMELOG [Suspect]
     Active Substance: INSULIN LISPRO
     Dosage: 3 TIMES AS MUCH INSULIN

REACTIONS (2)
  - Drug ineffective [Unknown]
  - Diabetes mellitus inadequate control [Unknown]
